FAERS Safety Report 10272333 (Version 1)
Quarter: 2014Q2

REPORT INFORMATION
  Report Type: Spontaneous
  Country: US (occurrence: None)
  Receive Date: 20140627
  Receipt Date: 20140627
  Transmission Date: 20141212
  Serious: Yes (Other)
  Sender: FDA-Public Use
  Company Number: SYM-2014-22376

PATIENT
  Age: 73 Year
  Sex: Male
  Weight: 81.65 kg

DRUGS (1)
  1. FLUOROURACIL [Suspect]
     Indication: SKIN CANCER
     Route: 061
     Dates: start: 20140606

REACTIONS (1)
  - Drug ineffective [None]
